FAERS Safety Report 9897391 (Version 2)
Quarter: 2014Q1

REPORT INFORMATION
  Report Type: Spontaneous
  Country: ES (occurrence: ES)
  Receive Date: 20140214
  Receipt Date: 20140227
  Transmission Date: 20141002
  Serious: Yes (Other)
  Sender: FDA-Public Use
  Company Number: ES-VERTEX PHARMACEUTICALS INC-2014-000740

PATIENT
  Age: 59 Year
  Sex: Male

DRUGS (4)
  1. INCIVO [Suspect]
     Indication: HEPATITIS C
     Dosage: 3 DF, BID
     Route: 048
     Dates: start: 20120907
  2. PEGASYS [Suspect]
     Indication: HEPATITIS C
     Dates: start: 20120907, end: 20121001
  3. COPEGUS [Suspect]
     Indication: HEPATITIS C
     Dates: start: 20120907, end: 20121001
  4. ADVAGRAF [Concomitant]
     Indication: LIVER TRANSPLANT
     Dosage: ^NEW DOSE^
     Dates: start: 20120906, end: 20121001

REACTIONS (4)
  - Malaise [Unknown]
  - Pancytopenia [Recovered/Resolved]
  - Renal impairment [Recovered/Resolved]
  - Off label use [Recovered/Resolved]
